FAERS Safety Report 4780950-7 (Version None)
Quarter: 2005Q3

REPORT INFORMATION
  Report Type: 
  Country: None (occurrence: None)
  Receive Date: 20050926
  Receipt Date: 20050926
  Transmission Date: 20060218
  Serious: Yes (Other)
  Sender: FDA-Public Use
  Company Number: None

PATIENT
  Sex: Female

DRUGS (1)
  1. SENSORCAINE [Suspect]
     Dosage: 20ML
     Dates: start: 20050923

REACTIONS (1)
  - MOTOR DYSFUNCTION [None]
